FAERS Safety Report 13721320 (Version 1)
Quarter: 2017Q3

REPORT INFORMATION
  Report Type: Spontaneous
  Country: US (occurrence: US)
  Receive Date: 20170706
  Receipt Date: 20170706
  Transmission Date: 20171127
  Serious: Yes (Other)
  Sender: FDA-Public Use
  Company Number: US-STRIDES ARCOLAB LIMITED-2017SP010368

PATIENT

DRUGS (5)
  1. LIDOCAINE. [Concomitant]
     Active Substance: LIDOCAINE
     Dosage: UNK
     Route: 031
  2. LIDOCAINE. [Concomitant]
     Active Substance: LIDOCAINE
     Indication: CATARACT OPERATION
     Dosage: UNKNOWN
     Route: 031
  3. VANCOMYCIN [Suspect]
     Active Substance: VANCOMYCIN
     Indication: PROPHYLAXIS
     Dosage: 1 MG/0.1 ML INTRACAMERAL, LEFT EYE
     Route: 031
  4. SODIUM HYALURONATE [Interacting]
     Active Substance: HYALURONATE SODIUM
     Indication: CATARACT OPERATION
     Dosage: UNKNOWN
     Route: 065
  5. VANCOMYCIN [Interacting]
     Active Substance: VANCOMYCIN
     Dosage: 1 MG/0.1 ML INTRACAMERAL, RIGHT EYE
     Route: 031

REACTIONS (13)
  - Retinal vasculitis [Unknown]
  - Retinal vascular occlusion [Unknown]
  - Glaucoma [Unknown]
  - Retinal oedema [Unknown]
  - Visual impairment [Unknown]
  - Type III immune complex mediated reaction [Unknown]
  - Vitreous haemorrhage [Unknown]
  - Drug interaction [Unknown]
  - Retinal haemorrhage [Unknown]
  - Conjunctival hyperaemia [Unknown]
  - Macular detachment [Unknown]
  - Visual acuity reduced [Unknown]
  - Corneal oedema [Unknown]
